FAERS Safety Report 14062109 (Version 2)
Quarter: 2018Q4

REPORT INFORMATION
  Report Type: Spontaneous
  Country: US (occurrence: US)
  Receive Date: 20171009
  Receipt Date: 20181113
  Transmission Date: 20190204
  Serious: No
  Sender: FDA-Public Use
  Company Number: US-PFIZER INC-2017430556

PATIENT
  Age: 46 Year
  Sex: Female
  Weight: 47 kg

DRUGS (3)
  1. FASLODEX [Concomitant]
     Active Substance: FULVESTRANT
     Dosage: UNK
     Dates: start: 201609, end: 201708
  2. IBRANCE [Suspect]
     Active Substance: PALBOCICLIB
     Indication: BREAST CANCER METASTATIC
     Dosage: 125 MG, CYCLIC (ONCE A DAY  21 DAYS ON AND 7 DAYS OFF)
     Dates: start: 201609, end: 201708
  3. XGEVA BONE BUILDER [Concomitant]
     Dosage: UNK
     Dates: start: 201609, end: 201802

REACTIONS (5)
  - Pain in extremity [Recovered/Resolved]
  - Neoplasm progression [Recovered/Resolved]
  - Dysstasia [Recovered/Resolved]
  - Bone pain [Recovered/Resolved]
  - Arthralgia [Recovered/Resolved]

NARRATIVE: CASE EVENT DATE: 201703
